FAERS Safety Report 25090182 (Version 2)
Quarter: 2025Q2

REPORT INFORMATION
  Report Type: Other
  Country: CN (occurrence: CN)
  Receive Date: 20250318
  Receipt Date: 20250402
  Transmission Date: 20250717
  Serious: Yes (Death, Hospitalization)
  Sender: KARYOPHARM THERAPEUTICS
  Company Number: CN-KARYOPHARM-2025KPT100023

PATIENT

DRUGS (5)
  1. SELINEXOR [Suspect]
     Active Substance: SELINEXOR
     Indication: Diffuse large B-cell lymphoma
     Route: 048
     Dates: start: 20250118, end: 20250204
  2. BRENTUXIMAB VEDOTIN [Suspect]
     Active Substance: BRENTUXIMAB VEDOTIN
     Indication: Diffuse large B-cell lymphoma
     Route: 042
     Dates: start: 20250119, end: 20250206
  3. ORELABRUTINIB [Suspect]
     Active Substance: ORELABRUTINIB
     Indication: Diffuse large B-cell lymphoma
     Route: 048
     Dates: start: 20250120, end: 20250209
  4. TISLELIZUMAB [Suspect]
     Active Substance: TISLELIZUMAB
     Indication: Diffuse large B-cell lymphoma
     Route: 042
     Dates: start: 20250119, end: 20250119
  5. LENALIDOMIDE [Suspect]
     Active Substance: LENALIDOMIDE
     Indication: Diffuse large B-cell lymphoma
     Route: 048
     Dates: start: 20250118, end: 20250131

REACTIONS (6)
  - Sepsis [Fatal]
  - Respiratory failure [Unknown]
  - Pneumonia [Unknown]
  - Platelet count decreased [Unknown]
  - Anaemia [Unknown]
  - Cardiac failure acute [Unknown]

NARRATIVE: CASE EVENT DATE: 20250228
